FAERS Safety Report 17835800 (Version 1)
Quarter: 2020Q2

REPORT INFORMATION
  Report Type: Spontaneous
  Country: IT (occurrence: IT)
  Receive Date: 20200528
  Receipt Date: 20200528
  Transmission Date: 20200714
  Serious: Yes (Other)
  Sender: FDA-Public Use
  Company Number: IT-BRISTOL-MYERS SQUIBB COMPANY-BMS-2020-041208

PATIENT
  Sex: Male

DRUGS (2)
  1. LARGACTIL [CHLORPROMAZINE] [Concomitant]
     Active Substance: CHLORPROMAZINE
     Indication: PRODUCT USED FOR UNKNOWN INDICATION
     Route: 065
  2. ELIQUIS [Suspect]
     Active Substance: APIXABAN
     Indication: DEEP VEIN THROMBOSIS
     Dosage: UNAVAILABLE
     Route: 065

REACTIONS (4)
  - Gamma-glutamyltransferase abnormal [Unknown]
  - Transaminases abnormal [Unknown]
  - Yellow skin [Unknown]
  - Ocular icterus [Unknown]
